FAERS Safety Report 15415084 (Version 3)
Quarter: 2019Q2

REPORT INFORMATION
  Report Type: Spontaneous
  Country: BE (occurrence: BE)
  Receive Date: 20180921
  Receipt Date: 20190527
  Transmission Date: 20190711
  Serious: Yes (Death, Other)
  Sender: FDA-Public Use
  Company Number: BE-TAKEDA-2018TUS021717

PATIENT
  Sex: Male

DRUGS (12)
  1. ASAFLOW [Concomitant]
     Active Substance: ASPIRIN
     Dosage: 80 MG, QD
     Route: 048
  2. NEORECORMON [Concomitant]
     Active Substance: ERYTHROPOIETIN
     Dosage: UNK UNK, 3/WEEK
  3. VITAMIN B12 [Concomitant]
     Active Substance: CYANOCOBALAMIN
     Dosage: 100 UG, Q3MONTHS
     Route: 042
  4. VITAMIN D3 [Concomitant]
     Active Substance: CHOLECALCIFEROL
     Dosage: UNK UNK, Q3MONTHS
     Route: 030
  5. CALCIUMCARBONAAT [Concomitant]
     Dosage: 3 G, QD
     Route: 048
  6. ATORVASTATINE                      /01326101/ [Concomitant]
     Active Substance: ATORVASTATIN
     Dosage: 10 MG, QD
     Route: 048
  7. ALVITYL PLUS [Concomitant]
  8. PANTOMED                           /01263204/ [Concomitant]
     Active Substance: PANTOPRAZOLE SODIUM
     Dosage: 40 MG, QD
     Route: 048
  9. RENAGEL [Concomitant]
     Active Substance: SEVELAMER HYDROCHLORIDE
     Dosage: UNK UNK, QD
     Route: 048
  10. FOLAVIT [Concomitant]
     Active Substance: FOLIC ACID
     Dosage: UNK
  11. ENTYVIO [Suspect]
     Active Substance: VEDOLIZUMAB
     Indication: CROHN^S DISEASE
     Dosage: UNK
     Route: 065
     Dates: start: 20150804
  12. CLOPIDOGREL [Concomitant]
     Active Substance: CLOPIDOGREL BISULFATE
     Dosage: 75 MG, QD
     Route: 048

REACTIONS (6)
  - Acute myocardial infarction [Unknown]
  - End stage renal disease [Not Recovered/Not Resolved]
  - Therapeutic product ineffective [Unknown]
  - Condition aggravated [Not Recovered/Not Resolved]
  - Crohn^s disease [Unknown]
  - Death [Fatal]
